FAERS Safety Report 5209831-1 (Version None)
Quarter: 2007Q1

REPORT INFORMATION
  Report Type: 
  Country: None (occurrence: None)
  Receive Date: 20070116
  Receipt Date: 20070109
  Transmission Date: 20070707
  Serious: Yes (Disabling, Other)
  Sender: FDA-Public Use
  Company Number: US-MERCK-0611USA01041

PATIENT
  Age: 54 Year
  Sex: Female
  Weight: 81 kg

DRUGS (18)
  1. MAXALT [Suspect]
     Indication: MIGRAINE
     Route: 048
     Dates: start: 20000101
  2. MAXALT [Suspect]
     Route: 048
     Dates: start: 20061015, end: 20061015
  3. CYMBALTA [Concomitant]
     Indication: DEPRESSION
     Route: 048
     Dates: start: 20040101
  4. COMBIPATCH [Concomitant]
     Indication: HORMONE REPLACEMENT THERAPY
     Route: 061
     Dates: start: 20040101
  5. LIPITOR [Concomitant]
     Indication: BLOOD CHOLESTEROL INCREASED
     Route: 048
     Dates: start: 20040101, end: 20061201
  6. XENICAL [Concomitant]
     Indication: HEPATIC STEATOSIS
     Route: 065
     Dates: start: 20030101
  7. ALBUTEROL [Concomitant]
     Route: 065
  8. FLONASE [Concomitant]
     Indication: RHINITIS ALLERGIC
     Route: 065
     Dates: start: 20000101
  9. CHROMIUM PICOLINATE [Concomitant]
     Indication: WEIGHT
     Route: 065
     Dates: start: 20000101, end: 20061201
  10. ASPIRIN [Concomitant]
     Indication: PROPHYLAXIS
     Route: 048
     Dates: start: 20030101
  11. TORADOL [Concomitant]
     Route: 030
     Dates: start: 20000101
  12. OS-CAL [Concomitant]
     Route: 065
     Dates: start: 20000101
  13. COSAMIN DS [Concomitant]
     Indication: ARTHRALGIA
     Route: 048
     Dates: start: 20030101
  14. ZINC (UNSPECIFIED) [Concomitant]
     Route: 048
     Dates: start: 20030101
  15. VITAMIN E [Concomitant]
     Route: 065
     Dates: start: 20030101
  16. Q-10 [Concomitant]
     Route: 065
     Dates: start: 20000101
  17. [THERAPY UNSPECIFIED] [Concomitant]
     Route: 048
     Dates: start: 20030101
  18. [THERAPY UNSPECIFIED] [Concomitant]
     Indication: SLEEP DISORDER
     Route: 048
     Dates: start: 20060901, end: 20061201

REACTIONS (1)
  - OPTIC ISCHAEMIC NEUROPATHY [None]
